FAERS Safety Report 11796272 (Version 2)
Quarter: 2015Q4

REPORT INFORMATION
  Report Type: Spontaneous
  Country: CH (occurrence: CH)
  Receive Date: 20151203
  Receipt Date: 20151209
  Transmission Date: 20160305
  Serious: Yes (Life-Threatening, Hospitalization, Other)
  Sender: FDA-Public Use
  Company Number: PHHY2015CH157704

PATIENT
  Age: 70 Year
  Sex: Male

DRUGS (14)
  1. TARGIN [Concomitant]
     Active Substance: NALOXONE HYDROCHLORIDE\OXYCODONE HYDROCHLORIDE
     Indication: PRODUCT USED FOR UNKNOWN INDICATION
     Dosage: UNK (10/5 MG, QD)
     Route: 065
  2. LAXOBERON [Concomitant]
     Active Substance: SODIUM PICOSULFATE
     Indication: PRODUCT USED FOR UNKNOWN INDICATION
     Dosage: UNK (10 DROPS IF CONSTIPATED)
     Route: 065
  3. MEPHAMESON [Concomitant]
     Active Substance: DEXAMETHASONE
     Dosage: 8 MG, QD
     Route: 065
  4. TAFINLAR [Suspect]
     Active Substance: DABRAFENIB MESYLATE
     Indication: MALIGNANT MELANOMA
     Dosage: 4.75 OT, QD
     Route: 065
     Dates: start: 20151012, end: 20151019
  5. MEPHAMESON [Concomitant]
     Active Substance: DEXAMETHASONE
     Indication: PRODUCT USED FOR UNKNOWN INDICATION
     Dosage: UNK
     Route: 065
  6. CONCOR [Concomitant]
     Active Substance: BISOPROLOL FUMARATE
     Indication: PRODUCT USED FOR UNKNOWN INDICATION
     Dosage: 2.5 MG, QD
     Route: 065
  7. ESOMEPRAZOLE [Concomitant]
     Active Substance: ESOMEPRAZOLE
     Indication: PRODUCT USED FOR UNKNOWN INDICATION
     Dosage: 40 MG, QD
     Route: 065
  8. TAFINLAR [Suspect]
     Active Substance: DABRAFENIB MESYLATE
     Dosage: 300 MG, UNK
     Route: 065
  9. TAFINLAR [Suspect]
     Active Substance: DABRAFENIB MESYLATE
     Dosage: 3 TABLETS OF 75 MG
     Route: 065
  10. FORTECORTIN [Concomitant]
     Active Substance: DEXAMETHASONE
     Indication: PRODUCT USED FOR UNKNOWN INDICATION
     Dosage: 4 MG, QD
     Route: 065
  11. ATROVENT [Concomitant]
     Active Substance: IPRATROPIUM BROMIDE
     Indication: PRODUCT USED FOR UNKNOWN INDICATION
     Route: 055
  12. VENTOLIN [Concomitant]
     Active Substance: ALBUTEROL SULFATE
     Indication: PRODUCT USED FOR UNKNOWN INDICATION
     Route: 055
  13. FRAXIFORTE [Concomitant]
     Active Substance: NADROPARIN CALCIUM
     Indication: PRODUCT USED FOR UNKNOWN INDICATION
     Dosage: 0.6 ML, QD
     Route: 065
  14. MEKINIST [Suspect]
     Active Substance: TRAMETINIB DIMETHYL SULFOXIDE
     Indication: MALIGNANT MELANOMA
     Dosage: 0.5 MG, QD
     Route: 065
     Dates: start: 20151128

REACTIONS (27)
  - Cerebral disorder [Unknown]
  - Road traffic accident [Unknown]
  - Meningioma [Unknown]
  - Hiccups [Unknown]
  - Insomnia [Recovering/Resolving]
  - Leukopenia [Recovering/Resolving]
  - Pancytopenia [Recovering/Resolving]
  - Dysphagia [Unknown]
  - Carpal tunnel syndrome [Unknown]
  - Blindness unilateral [Unknown]
  - Dysarthria [Unknown]
  - Thrombocytopenia [Recovering/Resolving]
  - Hemiparesis [Unknown]
  - Decreased appetite [Recovering/Resolving]
  - Metastases to bone [Unknown]
  - Benign prostatic hyperplasia [Unknown]
  - Metastases to liver [Unknown]
  - Depressed mood [Recovering/Resolving]
  - Arthropathy [Unknown]
  - Sepsis [Recovering/Resolving]
  - Wheezing [Not Recovered/Not Resolved]
  - Prostatic specific antigen increased [Unknown]
  - Cough [Not Recovered/Not Resolved]
  - Muscular weakness [Unknown]
  - Syncope [Unknown]
  - Brain stem syndrome [Unknown]
  - Optic neuritis [Recovering/Resolving]

NARRATIVE: CASE EVENT DATE: 20150916
